FAERS Safety Report 4568070-8 (Version None)
Quarter: 2005Q1

REPORT INFORMATION
  Report Type: 
  Country: None (occurrence: None)
  Receive Date: 20050202
  Receipt Date: 20050124
  Transmission Date: 20050727
  Serious: Yes (Hospitalization)
  Sender: FDA-Public Use
  Company Number: AU-BRISTOL-MYERS SQUIBB COMPANY-12834818

PATIENT
  Sex: Female

DRUGS (2)
  1. TAXOL [Suspect]
  2. CARBOPLATIN [Concomitant]

REACTIONS (1)
  - COUGH [None]
